FAERS Safety Report 4276327-3 (Version None)
Quarter: 2004Q1

REPORT INFORMATION
  Report Type: 
  Country: None (occurrence: None)
  Receive Date: 20040120
  Receipt Date: 20040120
  Transmission Date: 20041129
  Serious: Yes (Hospitalization)
  Sender: FDA-Public Use
  Company Number: None

PATIENT
  Age: 64 Year
  Sex: Male
  Weight: 108.4097 kg

DRUGS (18)
  1. METFORMIN HCL [Suspect]
     Indication: DIABETES MELLITUS
     Dosage: 1000 MG BID
     Dates: end: 20030204
  2. ACCU-CHEK COMFORT CV (GLUCOSE) TEST STRIP [Concomitant]
  3. ALBUTEROL SULFATE AND IPRATROPIUM BROMIDE [Concomitant]
  4. ALCOHOL PREP PAD [Concomitant]
  5. ARTIFICIAL TEARS POLYVINYL ALCOHOL (PF) [Concomitant]
  6. FUROSEMIDE [Concomitant]
  7. HUMULIN N [Concomitant]
  8. HUMULIN R [Concomitant]
  9. INSULIN SYRINGE [Concomitant]
  10. ISOSORBIDE DINITRATE [Concomitant]
  11. LISINOPRIL [Concomitant]
  12. LUBRICATING (PF) [Concomitant]
  13. METFORMIN HCL [Concomitant]
  14. METOPROLOL TARTRATE [Concomitant]
  15. NORTRIPTYLINE HCL [Concomitant]
  16. POTASSIUM CL [Concomitant]
  17. SIMVASTATIN [Concomitant]
  18. SPIRONOLACTONE [Concomitant]

REACTIONS (8)
  - ACIDOSIS [None]
  - ASTHENIA [None]
  - DIABETIC KETOACIDOSIS [None]
  - DYSPNOEA [None]
  - FATIGUE [None]
  - FEELING ABNORMAL [None]
  - LACTIC ACIDOSIS [None]
  - LOSS OF CONSCIOUSNESS [None]
